FAERS Safety Report 11497294 (Version 1)
Quarter: 2015Q3

REPORT INFORMATION
  Report Type: Spontaneous
  Country: CA (occurrence: CA)
  Receive Date: 20150911
  Receipt Date: 20150911
  Transmission Date: 20151125
  Serious: Yes (Other)
  Sender: FDA-Public Use
  Company Number: CA-VALIDUS PHARMACEUTICALS LLC-CA-2015VAL000571

PATIENT

DRUGS (22)
  1. IMODIUM [Concomitant]
     Active Substance: LOPERAMIDE HYDROCHLORIDE
     Dosage: UNK
  2. URISPAS [Concomitant]
     Active Substance: FLAVOXATE HYDROCHLORIDE
     Dosage: UNK
  3. ASA [Concomitant]
     Active Substance: ASPIRIN
     Dosage: UNK
  4. VESICARE [Concomitant]
     Active Substance: SOLIFENACIN SUCCINATE
     Dosage: UNK
  5. TIAZAC [Concomitant]
     Active Substance: DILTIAZEM HYDROCHLORIDE
     Dosage: UNK
  6. SOLIRIS [Concomitant]
     Active Substance: ECULIZUMAB
     Dosage: UNK
  7. LOPRESSOR [Suspect]
     Active Substance: METOPROLOL TARTRATE
     Indication: HYPERTENSION
     Dosage: 37.5 MG, BID
     Route: 048
     Dates: start: 201409
  8. SENSIPAR [Concomitant]
     Active Substance: CINACALCET HYDROCHLORIDE
     Dosage: UNK
  9. KAYEXALATE [Concomitant]
     Active Substance: SODIUM POLYSTYRENE SULFONATE
     Dosage: UNK
  10. DEXILANT [Concomitant]
     Active Substance: DEXLANSOPRAZOLE
     Dosage: UNK
  11. ACTONEL [Concomitant]
     Active Substance: RISEDRONATE SODIUM
     Dosage: UNK
  12. FLONASE [Concomitant]
     Active Substance: FLUTICASONE PROPIONATE
     Dosage: UNK
  13. FRAGMIN [Concomitant]
     Active Substance: DALTEPARIN SODIUM
     Dosage: UNK
  14. PROGRAF [Concomitant]
     Active Substance: TACROLIMUS\TACROLIMUS ANHYDROUS
     Dosage: UNK
  15. MENVEO [Suspect]
     Active Substance: NEISSERIA MENINGITIDIS GROUP A CAPSULAR OLIGOSACCHARIDE DIPHTHERIA CRM197 PROTEIN CONJUGATE ANTIGEN\NEISSERIA MENINGITIDIS GROUP C CAPSULAR OLIGOSACCHARIDE DIPHTHERIA CRM197 PROTEIN CONJUGATE ANTIGEN\NEISSERIA MENINGITIDIS GROUP W-135 CAPSULAR OLIGOSACCHARIDE DIPHTHERIA CRM197 PROTEIN CONJUGATE ANTI
     Indication: IMMUNISATION
     Dosage: 1 DF, INJECTION NOS
     Dates: start: 20131211
  16. MYFORTIC [Suspect]
     Active Substance: MYCOPHENOLATE SODIUM
     Indication: PRODUCT USED FOR UNKNOWN INDICATION
     Dosage: 2 MG IN THE AM AND 3 MG IN THE PM
     Route: 048
  17. GRAVOL [Concomitant]
     Active Substance: DIMENHYDRINATE
     Dosage: UNK
  18. AVAPRO [Concomitant]
     Active Substance: IRBESARTAN
     Dosage: UNK
  19. PREDNISONE. [Concomitant]
     Active Substance: PREDNISONE
     Dosage: UNK
  20. TYLENOL [Concomitant]
     Active Substance: ACETAMINOPHEN
     Dosage: UNK
  21. VOLTAREN [Suspect]
     Active Substance: DICLOFENAC SODIUM
     Indication: PRODUCT USED FOR UNKNOWN INDICATION
     Dosage: 100 MG, QD AS NEEDED
     Route: 048
     Dates: start: 20130222, end: 201409
  22. LIPITOR [Concomitant]
     Active Substance: ATORVASTATIN CALCIUM
     Dosage: UNK

REACTIONS (13)
  - Blue toe syndrome [Unknown]
  - Tachycardia [Recovered/Resolved]
  - Nasopharyngitis [Recovering/Resolving]
  - Arteriovenous fistula occlusion [Unknown]
  - Oropharyngeal pain [Unknown]
  - Limb injury [Unknown]
  - Rhinorrhoea [Recovering/Resolving]
  - Muscle strain [Unknown]
  - Pain in extremity [Unknown]
  - Renal pain [Unknown]
  - Thrombosis [Unknown]
  - Peripheral swelling [Recovering/Resolving]
  - Cough [Recovering/Resolving]

NARRATIVE: CASE EVENT DATE: 201409
